FAERS Safety Report 8695878 (Version 2)
Quarter: 2013Q4

REPORT INFORMATION
  Report Type: Spontaneous
  Country: US (occurrence: US)
  Receive Date: 20120801
  Receipt Date: 20131101
  Transmission Date: 20140711
  Serious: No
  Sender: FDA-Public Use
  Company Number: US-009507513-1206USA04200

PATIENT
  Age: 83 Year
  Sex: Female

DRUGS (1)
  1. JANUMET [Suspect]
     Indication: DIABETES MELLITUS
     Dosage: 500MG/50
     Route: 048
     Dates: start: 2011, end: 20120522

REACTIONS (1)
  - Renal disorder [Unknown]
